FAERS Safety Report 5006677-4 (Version None)
Quarter: 2006Q2

REPORT INFORMATION
  Report Type: 
  Country: None (occurrence: None)
  Receive Date: 20060519
  Receipt Date: 20060509
  Transmission Date: 20061013
  Serious: Yes (Hospitalization)
  Sender: FDA-Public Use
  Company Number: PHBS2006AT06969

PATIENT
  Age: 61 Year
  Sex: Male

DRUGS (3)
  1. ZOMETA [Suspect]
     Indication: PLASMACYTOMA
     Dosage: UNK, UNK
     Route: 065
  2. NEUROBION FORTE [Concomitant]
     Dosage: 3 X 2
     Route: 065
  3. SAROTEN [Concomitant]
     Dosage: 75 MG, ON DEMAND
     Route: 065

REACTIONS (3)
  - ACTINOMYCOSIS [None]
  - OSTECTOMY [None]
  - PLASTIC SURGERY [None]
